FAERS Safety Report 10056838 (Version 1)
Quarter: 2014Q2

REPORT INFORMATION
  Report Type: Spontaneous
  Country: CA (occurrence: CA)
  Receive Date: 20140403
  Receipt Date: 20140403
  Transmission Date: 20141212
  Serious: Yes (Death)
  Sender: FDA-Public Use
  Company Number: CA-AMGEN-CANSP2014022769

PATIENT
  Age: 69 Year
  Sex: Female

DRUGS (9)
  1. NEUPOGEN [Suspect]
     Indication: PRODUCT USED FOR UNKNOWN INDICATION
     Dosage: UNK
     Route: 065
  2. BOSUTINIB [Suspect]
     Indication: CHRONIC MYELOID LEUKAEMIA
     Dosage: UNK UNK, DAILY FOR 5 DAYS (MONTH 1)
     Route: 065
  3. BOSUTINIB [Suspect]
     Dosage: 400 MG, DAILY (MONTH 1)
     Route: 065
  4. BOSUTINIB [Suspect]
     Dosage: 500 MG, DAILY (MONTH 2)
     Route: 065
  5. HYDROCHLOROTHIAZIDE [Concomitant]
     Dosage: UNK
  6. INTERFERON ALFA [Concomitant]
     Indication: CHRONIC MYELOID LEUKAEMIA
     Dosage: UNK, FOR 12 MONTHS
  7. HYDROXYUREA [Concomitant]
     Indication: CHRONIC MYELOID LEUKAEMIA
     Dosage: UNK
  8. IMATINIB [Concomitant]
     Dosage: UNK
     Dates: start: 2001
  9. DASATINIB [Concomitant]
     Dosage: 70 MG, TWICE DAILY
     Dates: start: 2005

REACTIONS (7)
  - Sudden death [Fatal]
  - Neutropenia [Unknown]
  - Pleural effusion [Unknown]
  - Abdominal pain [Unknown]
  - Pulmonary mass [Unknown]
  - Thrombocytopenia [Unknown]
  - Nausea [Unknown]
